FAERS Safety Report 10271745 (Version 1)
Quarter: 2014Q3

REPORT INFORMATION
  Report Type: Spontaneous
  Country: US (occurrence: US)
  Receive Date: 20140701
  Receipt Date: 20140701
  Transmission Date: 20150326
  Serious: No
  Sender: FDA-Public Use
  Company Number: US-SA-2014SA073060

PATIENT
  Age: 32 Year
  Sex: Female
  Weight: 80.28 kg

DRUGS (1)
  1. CEREZYME [Suspect]
     Active Substance: IMIGLUCERASE
     Indication: GAUCHER^S DISEASE
     Dosage: DOSE:4400 UNIT(S)
     Route: 042
     Dates: start: 20120720

REACTIONS (1)
  - Pharyngitis streptococcal [Unknown]
